FAERS Safety Report 6925917-5 (Version None)
Quarter: 2010Q3

REPORT INFORMATION
  Report Type: 
  Country: None (occurrence: None)
  Receive Date: 20100816
  Receipt Date: 20100804
  Transmission Date: 20110219
  Serious: Yes (Other)
  Sender: FDA-Public Use
  Company Number: PHHY2010JP33982

PATIENT

DRUGS (3)
  1. RASILEZ [Suspect]
     Indication: HYPERTENSION
     Dosage: UNK
     Route: 048
  2. MICARDIS [Concomitant]
     Route: 048
  3. CALONAL [Concomitant]

REACTIONS (2)
  - DRUG ERUPTION [None]
  - RASH [None]
